FAERS Safety Report 6879006-9 (Version None)
Quarter: 2010Q3

REPORT INFORMATION
  Report Type: 
  Country: None (occurrence: None)
  Receive Date: 20100728
  Receipt Date: 20100713
  Transmission Date: 20110219
  Serious: Yes (Other)
  Sender: FDA-Public Use
  Company Number: US-BAYER-201027935NA

PATIENT
  Age: 24 Year
  Sex: Female
  Weight: 58 kg

DRUGS (2)
  1. ULTRAVIST 370 [Suspect]
     Indication: ABDOMINAL PAIN LOWER
     Dosage: TOTAL DAILY DOSE: 80 ML  UNIT DOSE: 500 ML
     Route: 042
     Dates: start: 20100713, end: 20100713
  2. SEASONIQUA [Concomitant]
     Indication: CONTRACEPTION

REACTIONS (2)
  - SUPRAVENTRICULAR TACHYCARDIA [None]
  - THROAT IRRITATION [None]
